FAERS Safety Report 8298909-4 (Version None)
Quarter: 2012Q2

REPORT INFORMATION
  Report Type: 
  Country: None (occurrence: None)
  Receive Date: 20120419
  Receipt Date: 20120416
  Transmission Date: 20120825
  Serious: No
  Sender: FDA-Public Use
  Company Number: US-PFIZER INC-2012094225

PATIENT
  Age: 90 Year
  Sex: Female

DRUGS (1)
  1. GABAPENTIN [Suspect]
     Indication: NEUROPATHY PERIPHERAL
     Dosage: 300 MG, 3X/DAY
     Route: 048

REACTIONS (6)
  - FATIGUE [None]
  - TREMOR [None]
  - DIZZINESS [None]
  - DYSKINESIA [None]
  - SPEECH DISORDER [None]
  - OCULAR DISCOMFORT [None]
